FAERS Safety Report 7534070-9 (Version None)
Quarter: 2011Q2

REPORT INFORMATION
  Report Type: 
  Country: None (occurrence: None)
  Receive Date: 20110608
  Receipt Date: 20060920
  Transmission Date: 20111010
  Serious: Yes (Other)
  Sender: FDA-Public Use
  Company Number: PHHO2006CL12766

PATIENT
  Sex: Female

DRUGS (9)
  1. MIACALCIN [Suspect]
     Indication: OSTEOARTHRITIS
     Dosage: 200 UL, UNK
     Dates: start: 20060601
  2. HYDROCHLOROTHIAZIDE [Concomitant]
  3. CARVEDILOL [Concomitant]
  4. TRAMADOL HYDROCHLORIDE [Concomitant]
  5. GLUCOSAMINE W/CHONDROITIN [Concomitant]
  6. CANDESARTAN CILEXETIL [Concomitant]
  7. ACETAMINOPHEN [Concomitant]
  8. VALPAX [Concomitant]
  9. METFORMIN HCL [Concomitant]

REACTIONS (2)
  - PNEUMONITIS [None]
  - SOCIAL PHOBIA [None]
